FAERS Safety Report 9397315 (Version 1)
Quarter: 2013Q3

REPORT INFORMATION
  Report Type: Spontaneous
  Country: US (occurrence: US)
  Receive Date: 20130712
  Receipt Date: 20130712
  Transmission Date: 20140515
  Serious: Yes (Other)
  Sender: FDA-Public Use
  Company Number: US-AMGEN-USASP2013048049

PATIENT
  Age: 56 Year
  Sex: Female

DRUGS (4)
  1. PROLIA [Suspect]
     Indication: OSTEOPOROSIS POSTMENOPAUSAL
     Dosage: 60 MG, UNK
     Dates: start: 20111109
  2. ANTIDEPRESSANTS [Concomitant]
  3. VITAMINS /90003601/ [Concomitant]
  4. VIACTIV                            /00751501/ [Concomitant]

REACTIONS (3)
  - Neurostimulator implantation [Unknown]
  - Sensitivity of teeth [Unknown]
  - Bone density decreased [Unknown]
